FAERS Safety Report 5411368-1 (Version None)
Quarter: 2007Q3

REPORT INFORMATION
  Report Type: 
  Country: None (occurrence: None)
  Receive Date: 20070810
  Receipt Date: 20070803
  Transmission Date: 20080115
  Serious: Yes (Other)
  Sender: FDA-Public Use
  Company Number: US-ASTRAZENECA-2007UW13271

PATIENT
  Sex: Female

DRUGS (11)
  1. NEXIUM [Suspect]
     Route: 048
  2. AMIDRINE [Concomitant]
  3. DICYCLOMINE [Concomitant]
  4. M.V.I. [Concomitant]
  5. VITAMIN E [Concomitant]
  6. ETODOLAC [Concomitant]
  7. CLARINEX [Concomitant]
  8. SERTRALINE [Concomitant]
  9. ARIMIDEX [Concomitant]
  10. LEVOTHYROXINE SODIUM [Concomitant]
  11. ADVAIR DISKUS 100/50 [Concomitant]

REACTIONS (2)
  - HEPATIC STEATOSIS [None]
  - LIVER DISORDER [None]
